FAERS Safety Report 20113634 (Version 2)
Quarter: 2021Q4

REPORT INFORMATION
  Report Type: Report from Study
  Country: US (occurrence: US)
  Receive Date: 20211125
  Receipt Date: 20211214
  Transmission Date: 20220303
  Serious: Yes (Hospitalization)
  Sender: FDA-Public Use
  Company Number: US-JNJFOC-20211142690

PATIENT
  Age: 19 Year
  Sex: Male
  Weight: 52.9 kg

DRUGS (4)
  1. INFLIXIMAB [Suspect]
     Active Substance: INFLIXIMAB
     Indication: Crohn^s disease
     Route: 042
     Dates: start: 20060127, end: 20100712
  2. STELARA [Concomitant]
     Active Substance: USTEKINUMAB
     Indication: Inflammatory bowel disease
     Dates: start: 20180402
  3. CANAKINUMAB [Concomitant]
     Active Substance: CANAKINUMAB
     Indication: Inflammatory bowel disease
  4. BUDESONIDE [Concomitant]
     Active Substance: BUDESONIDE
     Indication: Inflammatory bowel disease

REACTIONS (1)
  - Malnutrition [Not Recovered/Not Resolved]

NARRATIVE: CASE EVENT DATE: 20211001
